FAERS Safety Report 7467758-9 (Version None)
Quarter: 2011Q2

REPORT INFORMATION
  Report Type: 
  Country: None (occurrence: None)
  Receive Date: 20110509
  Receipt Date: 20110429
  Transmission Date: 20111010
  Serious: Yes (Other)
  Sender: FDA-Public Use
  Company Number: US-ASTRAZENECA-2011SE24821

PATIENT
  Age: 41 Year
  Sex: Female
  Weight: 100.7 kg

DRUGS (6)
  1. SEROQUEL XR [Suspect]
     Indication: MAJOR DEPRESSION
     Route: 048
     Dates: start: 20100101
  2. INDERAL [Concomitant]
     Indication: BLOOD PRESSURE
     Route: 048
  3. CYMBALTA [Concomitant]
     Indication: DEPRESSION
     Route: 048
  4. TOPAMAX [Concomitant]
     Route: 048
  5. CODEINE SULFATE [Concomitant]
     Indication: PAIN
     Route: 048
  6. LISINOPRIL [Concomitant]
     Indication: HYPERTENSION
     Route: 048

REACTIONS (3)
  - NAUSEA [None]
  - HAEMORRHOIDAL HAEMORRHAGE [None]
  - CONSTIPATION [None]
